FAERS Safety Report 12191348 (Version 1)
Quarter: 2016Q1

REPORT INFORMATION
  Report Type: Report from Study
  Country: US (occurrence: US)
  Receive Date: 20160318
  Receipt Date: 20160318
  Transmission Date: 20160526
  Serious: Yes (Other)
  Sender: FDA-Public Use
  Company Number: US-ACTELION-A-US2016-133012

PATIENT
  Age: 52 Year
  Sex: Female

DRUGS (3)
  1. MACITENTAN [Suspect]
     Active Substance: MACITENTAN
     Indication: PULMONARY ARTERIAL HYPERTENSION
     Dosage: 10 MG, QD
     Route: 048
  2. SILDENAFIL. [Concomitant]
     Active Substance: SILDENAFIL
  3. DILTIAZEM [Concomitant]
     Active Substance: DILTIAZEM

REACTIONS (8)
  - Dyspnoea [Unknown]
  - Condition aggravated [Unknown]
  - Decreased appetite [Unknown]
  - Loss of consciousness [Unknown]
  - Oxygen supplementation [Unknown]
  - Palpitations [Unknown]
  - Weight decreased [Unknown]
  - Chest pain [Unknown]
